FAERS Safety Report 21527796 (Version 2)
Quarter: 2022Q4

REPORT INFORMATION
  Report Type: Spontaneous
  Country: US (occurrence: US)
  Receive Date: 20221031
  Receipt Date: 20221031
  Transmission Date: 20230112
  Serious: No
  Sender: FDA-Public Use
  Company Number: US-RECKITT BENCKISER HEALTHCARE INT LIMITED-RB-085022-2022

PATIENT
  Age: 82 Year
  Sex: Male
  Weight: 64.399 kg

DRUGS (1)
  1. MUCINEX [Suspect]
     Active Substance: GUAIFENESIN
     Indication: Product used for unknown indication
     Dosage: 2 DOSAGE FORM, QD
     Route: 048
     Dates: start: 202102

REACTIONS (3)
  - Choking sensation [Not Recovered/Not Resolved]
  - Dysphagia [Not Recovered/Not Resolved]
  - Incorrect product administration duration [Unknown]
